FAERS Safety Report 8353655-3 (Version None)
Quarter: 2012Q2

REPORT INFORMATION
  Report Type: 
  Country: None (occurrence: None)
  Receive Date: 20120509
  Receipt Date: 20101014
  Transmission Date: 20120825
  Serious: Yes (Other)
  Sender: FDA-Public Use
  Company Number: 2010AP002123

PATIENT
  Age: 60 Year
  Sex: Male

DRUGS (18)
  1. ENTACAPONE [Suspect]
     Indication: PARKINSON'S DISEASE
     Dosage: 200 MG;5XD; 200 MG;QID; 200 MG;5XD
     Dates: start: 20080401, end: 20081201
  2. ENTACAPONE [Suspect]
     Indication: PARKINSON'S DISEASE
     Dosage: 200 MG;5XD; 200 MG;QID; 200 MG;5XD
     Dates: start: 20080101, end: 20080401
  3. ENTACAPONE [Suspect]
     Indication: PARKINSON'S DISEASE
     Dosage: 200 MG;5XD; 200 MG;QID; 200 MG;5XD
     Dates: start: 20060101, end: 20070801
  4. CARBIDOPA + LEVODOPA [Suspect]
     Indication: PARKINSON'S DISEASE
     Dosage: TID; 5XD; BID; QID
     Dates: start: 20080501, end: 20081201
  5. CARBIDOPA + LEVODOPA [Suspect]
     Indication: PARKINSON'S DISEASE
     Dosage: TID; 5XD; BID; QID
     Dates: start: 20050101, end: 20080401
  6. CARBIDOPA + LEVODOPA [Suspect]
     Indication: PARKINSON'S DISEASE
     Dosage: TID; 5XD; BID; QID
     Dates: start: 20040101, end: 20050101
  7. CARBIDOPA + LEVODOPA [Suspect]
     Indication: PARKINSON'S DISEASE
     Dosage: TID; 5XD; BID; QID
     Dates: start: 20080401, end: 20080501
  8. AMANTADINE HCL [Suspect]
     Indication: PARKINSON'S DISEASE
     Dosage: 100 MG;BID
     Dates: start: 20070101, end: 20081201
  9. SELEGILINE HCL [Suspect]
     Indication: PARKINSON'S DISEASE
     Dosage: 5 MG;BID
     Dates: start: 20020101, end: 20070801
  10. PRAMIPEXOLE DIHYDROCHLORIDE [Suspect]
     Indication: PARKINSON'S DISEASE
     Dosage: 0.25 MG;TID; 1 MG;QID; 1 MG;5XD; 5.5 MG;QD
     Dates: start: 20071101, end: 20080101
  11. PRAMIPEXOLE DIHYDROCHLORIDE [Suspect]
     Indication: PARKINSON'S DISEASE
     Dosage: 0.25 MG;TID; 1 MG;QID; 1 MG;5XD; 5.5 MG;QD
     Dates: start: 20030101, end: 20071101
  12. PRAMIPEXOLE DIHYDROCHLORIDE [Suspect]
     Indication: PARKINSON'S DISEASE
     Dosage: 0.25 MG;TID; 1 MG;QID; 1 MG;5XD; 5.5 MG;QD
     Dates: start: 20010101, end: 20030101
  13. PRAMIPEXOLE DIHYDROCHLORIDE [Suspect]
     Indication: PARKINSON'S DISEASE
     Dosage: 0.25 MG;TID; 1 MG;QID; 1 MG;5XD; 5.5 MG;QD
     Dates: start: 20080101, end: 20081201
  14. ROPINIROLE HYDROCHLORIDE [Suspect]
     Indication: PARKINSON'S DISEASE
     Dosage: 2 MG;HS
     Dates: start: 20081201
  15. CARBIDOPA + LEVODOPA [Suspect]
     Indication: PARKINSON'S DISEASE
     Dosage: BID; TID; BID; QID
     Dates: start: 20070301, end: 20080401
  16. CARBIDOPA + LEVODOPA [Suspect]
     Indication: PARKINSON'S DISEASE
     Dosage: BID; TID; BID; QID
     Dates: start: 20080501
  17. CARBIDOPA + LEVODOPA [Suspect]
     Indication: PARKINSON'S DISEASE
     Dosage: BID; TID; BID; QID
     Dates: start: 20060101, end: 20070301
  18. CARBIDOPA + LEVODOPA [Suspect]
     Indication: PARKINSON'S DISEASE
     Dosage: BID; TID; BID; QID
     Dates: start: 20080401, end: 20080501

REACTIONS (21)
  - SLEEP TALKING [None]
  - GAIT DISTURBANCE [None]
  - MIDDLE INSOMNIA [None]
  - DYSKINESIA [None]
  - BRUXISM [None]
  - DYSTONIA [None]
  - HYPOAESTHESIA ORAL [None]
  - CEREBRAL ATROPHY [None]
  - PATHOLOGICAL GAMBLING [None]
  - MUSCLE SPASMS [None]
  - ON AND OFF PHENOMENON [None]
  - TREMOR [None]
  - RAPID EYE MOVEMENTS SLEEP ABNORMAL [None]
  - CEREBRAL VENTRICLE DILATATION [None]
  - AGGRESSION [None]
  - ABNORMAL DREAMS [None]
  - PARKINSON'S DISEASE [None]
  - DISEASE PROGRESSION [None]
  - HALLUCINATIONS, MIXED [None]
  - BRADYKINESIA [None]
  - FALL [None]
